FAERS Safety Report 24456974 (Version 1)
Quarter: 2024Q4

REPORT INFORMATION
  Report Type: Report from Study
  Country: GR (occurrence: GR)
  Receive Date: 20241018
  Receipt Date: 20241018
  Transmission Date: 20250115
  Serious: No
  Sender: SANDOZ
  Company Number: GR-SANDOZ-SDZ2024GR087671

PATIENT
  Age: 12 Year
  Sex: Female

DRUGS (1)
  1. OMNITROPE [Suspect]
     Active Substance: SOMATROPIN
     Indication: Growth hormone deficiency
     Dosage: 100 ML (1.3 MG X 3 DAYS AND 1.2 MG X 2 DAYS)
     Route: 058
     Dates: start: 20210203

REACTIONS (5)
  - Therapeutic product effect incomplete [Unknown]
  - Poor quality device used [Unknown]
  - Incorrect dose administered [Unknown]
  - Expired device used [Unknown]
  - Inadvertent injection air bubble [Unknown]

NARRATIVE: CASE EVENT DATE: 20240101
